FAERS Safety Report 11132707 (Version 1)
Quarter: 2015Q2

REPORT INFORMATION
  Report Type: Spontaneous
  Country: US (occurrence: US)
  Receive Date: 20150522
  Receipt Date: 20150522
  Transmission Date: 20150821
  Serious: No
  Sender: FDA-Public Use
  Company Number: US-GLAXOSMITHKLINE-US2015GSK070388

PATIENT
  Sex: Female
  Weight: 73.5 kg

DRUGS (11)
  1. ONDANSETRON [Concomitant]
     Active Substance: ONDANSETRON
  2. MENTHOL CREAM [Concomitant]
  3. IMODIUM [Concomitant]
     Active Substance: LOPERAMIDE HYDROCHLORIDE
  4. AMOXICILLIN. [Suspect]
     Active Substance: AMOXICILLIN
     Indication: PRODUCT USED FOR UNKNOWN INDICATION
  5. TYLENOL [Concomitant]
     Active Substance: ACETAMINOPHEN
  6. OXYCODONE [Concomitant]
     Active Substance: OXYCODONE
  7. SIMETHICONE [Concomitant]
     Active Substance: DIMETHICONE\SILICON DIOXIDE\SIMETHICONE
  8. BENADRYL [Concomitant]
     Active Substance: DIPHENHYDRAMINE HYDROCHLORIDE
  9. VOTRIENT [Suspect]
     Active Substance: PAZOPANIB HYDROCHLORIDE
     Indication: CERVIX CARCINOMA STAGE IV
     Dosage: 600 MG, QD
     Route: 048
     Dates: start: 20150403
  10. GLYCERIN SUPPOSITORY [Concomitant]
     Active Substance: GLYCERIN
  11. KERASAL CREAM [Concomitant]

REACTIONS (22)
  - Glossodynia [Not Recovered/Not Resolved]
  - Nasal discomfort [Not Recovered/Not Resolved]
  - Abdominal discomfort [Not Recovered/Not Resolved]
  - Decreased appetite [Not Recovered/Not Resolved]
  - Blood pressure increased [Not Recovered/Not Resolved]
  - Hyperkeratosis [Not Recovered/Not Resolved]
  - Nausea [Not Recovered/Not Resolved]
  - Diarrhoea [Not Recovered/Not Resolved]
  - Gastrointestinal pain [Not Recovered/Not Resolved]
  - Back pain [Not Recovered/Not Resolved]
  - Skin atrophy [Not Recovered/Not Resolved]
  - Oral pain [Not Recovered/Not Resolved]
  - Toothache [Not Recovered/Not Resolved]
  - Nasal dryness [Not Recovered/Not Resolved]
  - Skin discolouration [Not Recovered/Not Resolved]
  - Erythema [Not Recovered/Not Resolved]
  - Pain in extremity [Not Recovered/Not Resolved]
  - Constipation [Not Recovered/Not Resolved]
  - Drug hypersensitivity [Unknown]
  - Vomiting [Not Recovered/Not Resolved]
  - Fatigue [Not Recovered/Not Resolved]
  - Hair colour changes [Not Recovered/Not Resolved]
